FAERS Safety Report 10448257 (Version 2)
Quarter: 2014Q3

REPORT INFORMATION
  Report Type: Report from Study
  Country: US (occurrence: US)
  Receive Date: 20140911
  Receipt Date: 20140911
  Transmission Date: 20150326
  Serious: Yes (Hospitalization, Other)
  Sender: FDA-Public Use
  Company Number: US-ASTRAZENECA-2014SE53587

PATIENT
  Age: 20728 Day
  Sex: Female
  Weight: 90.7 kg

DRUGS (8)
  1. TENORMIN [Suspect]
     Active Substance: ATENOLOL
     Indication: CHEST PAIN
     Route: 048
     Dates: start: 20140602
  2. XANAX [Concomitant]
     Active Substance: ALPRAZOLAM
     Indication: NERVOUSNESS
     Route: 048
     Dates: start: 2002, end: 201406
  3. BABY ASPIRIN [Concomitant]
     Active Substance: ASPIRIN
     Indication: ARTHRALGIA
     Route: 048
  4. BENADRYL [Concomitant]
     Active Substance: DIPHENHYDRAMINE HYDROCHLORIDE
     Indication: SINUS DISORDER
     Dosage: AS REQUIRED
     Route: 048
  5. LIPITOR [Suspect]
     Active Substance: ATORVASTATIN CALCIUM
     Indication: BLOOD CHOLESTEROL ABNORMAL
     Route: 048
     Dates: start: 20140714, end: 20140721
  6. XANAX [Concomitant]
     Active Substance: ALPRAZOLAM
     Indication: NERVOUSNESS
     Route: 048
     Dates: start: 201406
  7. CRESTOR [Suspect]
     Active Substance: ROSUVASTATIN CALCIUM
     Indication: BLOOD CHOLESTEROL ABNORMAL
     Route: 048
     Dates: start: 20140602, end: 20140713
  8. MORPHINE (NON AZ) [Suspect]
     Active Substance: MORPHINE
     Route: 065

REACTIONS (21)
  - Movement disorder [Unknown]
  - Pain [Recovered/Resolved]
  - Muscle tightness [Unknown]
  - Stress [Not Recovered/Not Resolved]
  - Palpitations [Unknown]
  - Arteriosclerosis [Unknown]
  - Vomiting [Unknown]
  - Drug hypersensitivity [Unknown]
  - Muscle rigidity [Unknown]
  - Muscle spasms [Unknown]
  - Malaise [Unknown]
  - Headache [Recovered/Resolved]
  - Gait disturbance [Recovered/Resolved]
  - Feeling abnormal [Recovered/Resolved]
  - Activities of daily living impaired [Recovered/Resolved]
  - Myalgia [Recovered/Resolved]
  - Chest pain [Unknown]
  - Chest pain [Not Recovered/Not Resolved]
  - Joint stiffness [Recovered/Resolved]
  - Tremor [Unknown]
  - Blood cholesterol increased [Unknown]

NARRATIVE: CASE EVENT DATE: 20140602
